FAERS Safety Report 25411153 (Version 2)
Quarter: 2025Q3

REPORT INFORMATION
  Report Type: Report from Study
  Country: US (occurrence: US)
  Receive Date: 20250609
  Receipt Date: 20250709
  Transmission Date: 20251020
  Serious: Yes (Hospitalization, Other)
  Sender: ROCHE
  Company Number: US-ROCHE-10000300400

PATIENT
  Sex: Male

DRUGS (5)
  1. AVASTIN [Suspect]
     Active Substance: BEVACIZUMAB
     Indication: Colon cancer
     Route: 042
  2. FLUOROURACIL\IRINOTECAN\LEUCOVORIN [Suspect]
     Active Substance: FLUOROURACIL\IRINOTECAN\LEUCOVORIN
     Indication: Colon cancer
     Route: 065
  3. IRINOTECAN [Concomitant]
     Active Substance: IRINOTECAN
  4. FLUOROURACIL [Concomitant]
     Active Substance: FLUOROURACIL
  5. LEUCOVORIN [Concomitant]
     Active Substance: LEUCOVORIN\LEUCOVORIN CALCIUM

REACTIONS (8)
  - Colon cancer recurrent [Unknown]
  - Gastritis [Unknown]
  - Oesophagitis [Unknown]
  - Drug intolerance [Unknown]
  - Pleural effusion [Unknown]
  - Jugular vein thrombosis [Unknown]
  - Venous thrombosis [Unknown]
  - Drug ineffective [Unknown]
